FAERS Safety Report 17097493 (Version 1)
Quarter: 2019Q4

REPORT INFORMATION
  Report Type: Spontaneous
  Country: US (occurrence: US)
  Receive Date: 20191105
  Receipt Date: 20191105
  Transmission Date: 20200122
  Serious: No
  Sender: FDA-Public Use
  Company Number: None

PATIENT
  Sex: Female

DRUGS (1)
  1. TOBRAMYCIN (56AMP/28DAY) 300MG/5ML LUPIN PHARMACEUTIOCALS [Suspect]
     Active Substance: TOBRAMYCIN
     Indication: BRONCHIECTASIS
     Route: 055
     Dates: start: 20170826

REACTIONS (4)
  - Secretion discharge [None]
  - Dizziness [None]
  - Hyperhidrosis [None]
  - Haemoptysis [None]
